FAERS Safety Report 7515687-4 (Version None)
Quarter: 2011Q2

REPORT INFORMATION
  Report Type: 
  Country: None (occurrence: None)
  Receive Date: 20110601
  Receipt Date: 20100719
  Transmission Date: 20111010
  Serious: No
  Sender: FDA-Public Use
  Company Number: US-PFIZER INC-2010090755

PATIENT
  Sex: Male
  Weight: 90.703 kg

DRUGS (3)
  1. LIPITOR [Concomitant]
     Dosage: UNK
  2. CHANTIX [Suspect]
     Dosage: UNK, 2/DAY
     Route: 048
     Dates: start: 20100401, end: 20100630
  3. CHANTIX [Suspect]
     Indication: SMOKING CESSATION THERAPY
     Dosage: 0.5 MG, 1X/DAY
     Route: 048
     Dates: start: 20100401

REACTIONS (4)
  - MIDDLE INSOMNIA [None]
  - ABNORMAL DREAMS [None]
  - CONDITION AGGRAVATED [None]
  - POLLAKIURIA [None]
